FAERS Safety Report 14785487 (Version 1)
Quarter: 2018Q2

REPORT INFORMATION
  Report Type: Spontaneous
  Country: GB (occurrence: DE)
  Receive Date: 20180420
  Receipt Date: 20180420
  Transmission Date: 20180711
  Serious: Yes (Hospitalization, Other)
  Sender: FDA-Public Use
  Company Number: DE-FRESENIUS KABI-FK201804590

PATIENT
  Age: 60 Year
  Sex: Male
  Weight: 95 kg

DRUGS (30)
  1. IRINOTECAN (MANUFACTURER UNKNOWN) [Suspect]
     Active Substance: IRINOTECAN
     Indication: COLORECTAL CANCER
     Route: 042
     Dates: start: 20171016, end: 20171016
  2. BEVACIZUMAB. [Suspect]
     Active Substance: BEVACIZUMAB
     Route: 042
     Dates: start: 20160704, end: 20160704
  3. FLUOROURACIL. [Suspect]
     Active Substance: FLUOROURACIL
     Route: 041
  4. AVASTIN [Suspect]
     Active Substance: BEVACIZUMAB
     Indication: COLORECTAL CANCER METASTATIC
     Route: 042
     Dates: start: 20171002, end: 20171002
  5. AVASTIN [Suspect]
     Active Substance: BEVACIZUMAB
     Route: 042
     Dates: start: 20171016, end: 20171016
  6. FLUOROURACIL. [Suspect]
     Active Substance: FLUOROURACIL
     Indication: COLORECTAL CANCER
     Route: 040
     Dates: start: 20160704, end: 20161205
  7. FLUOROURACIL. [Suspect]
     Active Substance: FLUOROURACIL
     Route: 042
     Dates: start: 20170410, end: 20170412
  8. FLUOROURACIL. [Suspect]
     Active Substance: FLUOROURACIL
     Route: 042
  9. AVASTIN [Suspect]
     Active Substance: BEVACIZUMAB
     Route: 050
     Dates: start: 20171016
  10. FOLINIC ACID [Concomitant]
     Active Substance: LEUCOVORIN
     Indication: COLORECTAL CANCER
     Route: 042
     Dates: start: 20160704, end: 20170410
  11. FLUOROURACIL. [Suspect]
     Active Substance: FLUOROURACIL
     Route: 042
     Dates: start: 20171016, end: 20171018
  12. RIVAROXABAN [Suspect]
     Active Substance: RIVAROXABAN
     Route: 048
     Dates: start: 20170524
  13. FLUOROURACIL. [Suspect]
     Active Substance: FLUOROURACIL
     Route: 042
  14. AVASTIN [Suspect]
     Active Substance: BEVACIZUMAB
     Route: 050
     Dates: start: 20160704, end: 20160704
  15. MCP [Concomitant]
     Active Substance: METOCLOPRAMIDE HYDROCHLORIDE
     Indication: PRODUCT USED FOR UNKNOWN INDICATION
     Route: 048
  16. NOVALGIN (METAMIZOLE SODIUM) [Concomitant]
     Active Substance: METAMIZOLE SODIUM
     Indication: ANALGESIC THERAPY
     Route: 048
  17. BEVACIZUMAB. [Suspect]
     Active Substance: BEVACIZUMAB
     Route: 042
     Dates: start: 20171002, end: 20171002
  18. FLUOROURACIL. [Suspect]
     Active Substance: FLUOROURACIL
     Route: 042
     Dates: start: 20171001, end: 20171004
  19. FLUOROURACIL. [Suspect]
     Active Substance: FLUOROURACIL
     Route: 041
     Dates: start: 20160704
  20. PALONOSETRON HYDROCHLORIDE. [Suspect]
     Active Substance: PALONOSETRON HYDROCHLORIDE
     Indication: PROPHYLAXIS OF NAUSEA AND VOMITING
     Route: 065
     Dates: start: 20171030
  21. DEXAMETASON [Concomitant]
     Active Substance: DEXAMETHASONE
     Indication: PROPHYLAXIS OF NAUSEA AND VOMITING
     Route: 042
     Dates: start: 20170116
  22. IRINOTECAN (MANUFACTURER UNKNOWN) [Suspect]
     Active Substance: IRINOTECAN
     Route: 042
     Dates: start: 20160704, end: 20161205
  23. BEVACIZUMAB. [Suspect]
     Active Substance: BEVACIZUMAB
     Indication: COLORECTAL CANCER METASTATIC
     Route: 042
     Dates: start: 20171016, end: 20171016
  24. FLUOROURACIL. [Suspect]
     Active Substance: FLUOROURACIL
     Route: 042
  25. RIVAROXABAN [Suspect]
     Active Substance: RIVAROXABAN
     Indication: DEEP VEIN THROMBOSIS
     Route: 048
     Dates: start: 20170524
  26. DEXAMETASON [Concomitant]
     Active Substance: DEXAMETHASONE
     Route: 042
     Dates: start: 20160604, end: 20161206
  27. ONDANSETRON [Concomitant]
     Active Substance: ONDANSETRON
     Indication: PROPHYLAXIS OF NAUSEA AND VOMITING
     Route: 042
     Dates: start: 20170116
  28. METOCLOPRAMIDE. [Concomitant]
     Active Substance: METOCLOPRAMIDE
     Indication: PRODUCT USED FOR UNKNOWN INDICATION
     Route: 048
  29. RAMIPRIL. [Concomitant]
     Active Substance: RAMIPRIL
     Indication: HYPERTENSION
     Route: 048
     Dates: start: 20170410
  30. EMEND [Concomitant]
     Active Substance: APREPITANT
     Indication: PROPHYLAXIS OF NAUSEA AND VOMITING
     Route: 048

REACTIONS (6)
  - Paraesthesia [Recovered/Resolved]
  - Haematochezia [Recovered/Resolved]
  - Nausea [Not Recovered/Not Resolved]
  - Constipation [Recovered/Resolved]
  - Deep vein thrombosis [Recovered/Resolved with Sequelae]
  - Vomiting [Recovered/Resolved]

NARRATIVE: CASE EVENT DATE: 20170422
